FAERS Safety Report 8435524-3 (Version None)
Quarter: 2012Q2

REPORT INFORMATION
  Report Type: 
  Country: None (occurrence: None)
  Receive Date: 20120614
  Receipt Date: 20120606
  Transmission Date: 20120825
  Serious: Yes (Hospitalization)
  Sender: FDA-Public Use
  Company Number: US-BAYER-2012-057338

PATIENT
  Age: 35 Year
  Sex: Female
  Weight: 129.71 kg

DRUGS (11)
  1. DROSPIRENONE AND ETHINYL ESTRADIOL [Suspect]
     Indication: MENSTRUATION IRREGULAR
  2. IRON [Concomitant]
     Indication: ANAEMIA
     Dosage: 325 MG, UNK
  3. DIOVAN [Concomitant]
     Indication: HYPERTENSION
     Dosage: 160 MG, UNK
     Dates: start: 20090709, end: 20091104
  4. FLUVIRIN [Concomitant]
     Dosage: 0.5 ML, UNK
     Route: 051
     Dates: start: 20090830
  5. PROAIR HFA [Concomitant]
     Dosage: UNK
     Route: 045
     Dates: start: 20090709
  6. LISINOPRIL [Concomitant]
     Dosage: 10 MG, OM
     Dates: start: 20090707
  7. YAZ [Suspect]
     Indication: MENSTRUATION IRREGULAR
  8. AZITHROMYCIN [Concomitant]
     Dosage: 250 MG, UNK
     Dates: start: 20090709
  9. YASMIN [Suspect]
     Indication: MENSTRUATION IRREGULAR
  10. CYCLOBENZAPRINE [Concomitant]
     Dosage: 10 MG, TID
     Dates: start: 20090924
  11. NAPROXEN [Concomitant]
     Dosage: 500 MG, BID
     Route: 048
     Dates: start: 20090924

REACTIONS (1)
  - DEEP VEIN THROMBOSIS [None]
